FAERS Safety Report 21522371 (Version 2)
Quarter: 2023Q1

REPORT INFORMATION
  Report Type: Spontaneous
  Country: US (occurrence: US)
  Receive Date: 20221028
  Receipt Date: 20230127
  Transmission Date: 20230418
  Serious: Yes (Death)
  Sender: FDA-Public Use
  Company Number: US-ABBVIE-4180941

PATIENT
  Sex: Male

DRUGS (1)
  1. IMBRUVICA [Suspect]
     Active Substance: IBRUTINIB
     Indication: Product used for unknown indication
     Route: 048

REACTIONS (6)
  - Cardiac arrest [Fatal]
  - Type 2 diabetes mellitus [Fatal]
  - Acute respiratory failure [Fatal]
  - Tumour lysis syndrome [Fatal]
  - Chronic lymphocytic leukaemia [Fatal]
  - Chronic respiratory disease [Fatal]
